FAERS Safety Report 16275498 (Version 4)
Quarter: 2020Q1

REPORT INFORMATION
  Report Type: Spontaneous
  Country: DZ (occurrence: DZ)
  Receive Date: 20190506
  Receipt Date: 20200309
  Transmission Date: 20200409
  Serious: Yes (Death, Life-Threatening, Hospitalization, Other)
  Sender: FDA-Public Use
  Company Number: DZ-BIOVITRUM-2019DZ0919

PATIENT
  Age: 3 Year
  Sex: Female
  Weight: 12 kg

DRUGS (1)
  1. ORFADIN [Suspect]
     Active Substance: NITISINONE
     Indication: TYROSINAEMIA
     Dosage: 1 MG/KG/DAY
     Dates: start: 20170209

REACTIONS (10)
  - Hepatic cancer [Not Recovered/Not Resolved]
  - Metastases to lung [Not Recovered/Not Resolved]
  - Photophobia [Unknown]
  - Vena cava thrombosis [Unknown]
  - Alpha 1 foetoprotein increased [Unknown]
  - Hepatic failure [Fatal]
  - Metastases to liver [Unknown]
  - Pulmonary hypertension [Unknown]
  - Hepatomegaly [Unknown]
  - Hepatotoxicity [Not Recovered/Not Resolved]

NARRATIVE: CASE EVENT DATE: 2018
